FAERS Safety Report 25776520 (Version 2)
Quarter: 2025Q3

REPORT INFORMATION
  Report Type: Spontaneous
  Country: US (occurrence: US)
  Receive Date: 20250909
  Receipt Date: 20250909
  Transmission Date: 20251020
  Serious: No
  Sender: DOMPE FARMACEUTICI
  Company Number: US-FARMAPROD-202502-0629

PATIENT
  Sex: Female

DRUGS (5)
  1. OXERVATE [Suspect]
     Active Substance: CENEGERMIN-BKBJ
     Indication: Neurotrophic keratopathy
     Route: 047
     Dates: start: 20250213
  2. RESTASIS [Concomitant]
     Active Substance: CYCLOSPORINE
  3. OLMESARTAN/AMLODIPINE/HCTZ KRKA [Concomitant]
  4. KAITLIB FE [Concomitant]
     Active Substance: ETHINYL ESTRADIOL\NORETHINDRONE
  5. ZYRTEC-D [Concomitant]
     Active Substance: CETIRIZINE HYDROCHLORIDE\PSEUDOEPHEDRINE HYDROCHLORIDE

REACTIONS (1)
  - Eye infection [Unknown]
